FAERS Safety Report 8817248 (Version 1)
Quarter: 2012Q4

REPORT INFORMATION
  Report Type: 
  Country: US (occurrence: US)
  Receive Date: 20121004
  Receipt Date: 20121004
  Transmission Date: 20130627
  Serious: No
  Sender: FDA-Public Use
  Company Number: US-ASTRAZENECA-2012SE73069

PATIENT
  Age: 69 Year
  Sex: Female

DRUGS (3)
  1. SYMBICORT [Suspect]
     Indication: ASTHMA
     Dosage: 160/4.5  2 puff TWO TIMES A DAY
     Route: 055
     Dates: end: 20120917
  2. ALBUTEROL [Concomitant]
  3. NASAL SPRAY [Concomitant]

REACTIONS (3)
  - Chest discomfort [Unknown]
  - Sinusitis [Unknown]
  - Drug dose omission [Unknown]
